FAERS Safety Report 9140263 (Version 2)
Quarter: 2013Q1

REPORT INFORMATION
  Report Type: Spontaneous
  Country: US (occurrence: US)
  Receive Date: 20130305
  Receipt Date: 20130325
  Transmission Date: 20140127
  Serious: Yes (Death)
  Sender: FDA-Public Use
  Company Number: US-ASTELLAS-2013US002316

PATIENT
  Sex: Male

DRUGS (1)
  1. PROGRAF [Suspect]
     Indication: HEART TRANSPLANT
     Dosage: 7 MG, UID/QD
     Route: 048
     Dates: start: 20090629

REACTIONS (2)
  - Unevaluable event [Fatal]
  - Neoplasm malignant [Fatal]
